FAERS Safety Report 11605072 (Version 4)
Quarter: 2016Q1

REPORT INFORMATION
  Report Type: Spontaneous
  Country: US (occurrence: US)
  Receive Date: 20151007
  Receipt Date: 20160106
  Transmission Date: 20160525
  Serious: Yes (Other)
  Sender: FDA-Public Use
  Company Number: US-PFIZER INC-2015318891

PATIENT
  Age: 65 Year
  Sex: Female
  Weight: 87 kg

DRUGS (14)
  1. IBRANCE [Suspect]
     Active Substance: PALBOCICLIB
     Dosage: 125 MG, 1X/DAY
     Route: 048
     Dates: start: 20150825
  2. LUTEIN [Concomitant]
     Active Substance: LUTEIN
     Dosage: 10 MG, UNK
     Route: 048
  3. TENOLOC [Concomitant]
     Dosage: 0.1 %, UNK
  4. RESTONE [Concomitant]
     Indication: SLEEP DISORDER
     Dosage: UNK
  5. IBRANCE [Suspect]
     Active Substance: PALBOCICLIB
     Indication: BREAST CANCER METASTATIC
     Dosage: 125 MG, 1X/DAY
     Route: 048
     Dates: start: 201507, end: 20150814
  6. LIPITOR [Concomitant]
     Active Substance: ATORVASTATIN CALCIUM
     Indication: BLOOD CHOLESTEROL ABNORMAL
     Dosage: 20 MG, UNK
     Route: 048
  7. NORCO [Concomitant]
     Active Substance: ACETAMINOPHEN\HYDROCODONE BITARTRATE
     Dosage: UNK
  8. CLOBETASOL [Concomitant]
     Active Substance: CLOBETASOL
     Dosage: UNK
  9. FASLODEX [Concomitant]
     Active Substance: FULVESTRANT
     Dosage: UNK
     Dates: start: 20150522
  10. METROGEL [Concomitant]
     Active Substance: METRONIDAZOLE
     Dosage: 0.75 %, UNK
  11. CALCITRENE [Concomitant]
     Active Substance: CALCIPOTRIENE
     Dosage: UNK
  12. ZIAC [Concomitant]
     Active Substance: BISOPROLOL FUMARATE\HYDROCHLOROTHIAZIDE
     Indication: BLOOD PRESSURE ABNORMAL
     Dosage: 5/6.25 MG
  13. ZESTRIL [Concomitant]
     Active Substance: LISINOPRIL
     Dosage: 50 MG, UNK
     Route: 048
  14. CALCIUM AND VIT D [Concomitant]
     Active Substance: CALCIUM\VITAMIN D
     Indication: SUPPLEMENTATION THERAPY
     Dosage: UNK

REACTIONS (2)
  - Platelet count abnormal [Unknown]
  - Neutropenia [Recovered/Resolved]

NARRATIVE: CASE EVENT DATE: 201508
